FAERS Safety Report 4282507-3 (Version None)
Quarter: 2004Q1

REPORT INFORMATION
  Report Type: 
  Country: None (occurrence: None)
  Receive Date: 20040129
  Receipt Date: 20040113
  Transmission Date: 20041129
  Serious: Yes (Other)
  Sender: FDA-Public Use
  Company Number: B0319829A

PATIENT

DRUGS (1)
  1. HYCAMTIN [Suspect]
     Indication: MYELODYSPLASTIC SYNDROME
     Dosage: 1. 5 MG/M2/ VARIABLE DOSE/ INTRAVENOUS
     Route: 042

REACTIONS (2)
  - CARDIAC FAILURE CONGESTIVE [None]
  - CONVULSION [None]
